FAERS Safety Report 13894775 (Version 1)
Quarter: 2017Q3

REPORT INFORMATION
  Report Type: Spontaneous
  Country: US (occurrence: US)
  Receive Date: 20170817
  Receipt Date: 20170817
  Transmission Date: 20171127
  Serious: Yes (Hospitalization)
  Sender: FDA-Public Use
  Company Number: None

PATIENT
  Age: 64 Year
  Sex: Female
  Weight: 80.9 kg

DRUGS (10)
  1. |MONTELUKAST [Concomitant]
  2. DAPTOMYCIN. [Suspect]
     Active Substance: DAPTOMYCIN
     Indication: SUBCUTANEOUS ABSCESS
     Route: 040
     Dates: start: 20170722, end: 20170731
  3. ACETAMINOPHEN. [Concomitant]
     Active Substance: ACETAMINOPHEN
  4. GABAPENTIN. [Suspect]
     Active Substance: GABAPENTIN
  5. INSULIN GLARGINE [Concomitant]
     Active Substance: INSULIN GLARGINE
  6. INSULIN LISPRO [Concomitant]
     Active Substance: INSULIN LISPRO
  7. ATORVASTATIN [Concomitant]
     Active Substance: ATORVASTATIN
  8. OMEPRAZOLE. [Concomitant]
     Active Substance: OMEPRAZOLE
  9. METOPROLOL TARTRATE. [Concomitant]
     Active Substance: METOPROLOL TARTRATE
  10. OMEGA-3 ACID ETHYL ESTERS [Concomitant]
     Active Substance: OMEGA-3-ACID ETHYL ESTERS

REACTIONS (3)
  - Rhabdomyolysis [None]
  - Aspartate aminotransferase increased [None]
  - Alanine aminotransferase increased [None]

NARRATIVE: CASE EVENT DATE: 20170802
